FAERS Safety Report 20749876 (Version 4)
Quarter: 2022Q2

REPORT INFORMATION
  Report Type: Spontaneous
  Country: CH (occurrence: CH)
  Receive Date: 20220426
  Receipt Date: 20220527
  Transmission Date: 20220720
  Serious: Yes (Hospitalization, Congenital Anomaly, Other)
  Sender: FDA-Public Use
  Company Number: CH-GlaxoSmithKline-CH2022GSK066568

PATIENT

DRUGS (4)
  1. LAMIVUDINE [Suspect]
     Active Substance: LAMIVUDINE
     Indication: Asymptomatic HIV infection
     Dosage: UNK
     Route: 064
  2. RETROVIR [Suspect]
     Active Substance: ZIDOVUDINE
     Indication: Prophylaxis against HIV infection
     Dosage: Z(2MG/KG/HR)
     Route: 064
  3. TENOFOVIR DISOPROXIL FUMARATE [Suspect]
     Active Substance: TENOFOVIR DISOPROXIL FUMARATE
     Indication: Asymptomatic HIV infection
     Dosage: UNK
     Route: 064
  4. LOPINAVIR\RITONAVIR [Suspect]
     Active Substance: LOPINAVIR\RITONAVIR
     Indication: Asymptomatic HIV infection
     Dosage: UNK
     Route: 064

REACTIONS (10)
  - Meningomyelocele [Recovered/Resolved]
  - Arnold-Chiari malformation [Recovered/Resolved]
  - Brain herniation [Recovered/Resolved]
  - Premature baby [Unknown]
  - Neonatal respiratory distress syndrome [Unknown]
  - Necrotising enterocolitis neonatal [Recovered/Resolved]
  - Macrocephaly [Not Recovered/Not Resolved]
  - Hydromyelia [Not Recovered/Not Resolved]
  - Hyperbilirubinaemia neonatal [Unknown]
  - Foetal exposure during pregnancy [Unknown]
